FAERS Safety Report 6277812-5 (Version None)
Quarter: 2009Q3

REPORT INFORMATION
  Report Type: 
  Country: None (occurrence: None)
  Receive Date: 20090717
  Receipt Date: 20090717
  Transmission Date: 20100115
  Serious: Yes (Other)
  Sender: FDA-Public Use
  Company Number: None

PATIENT
  Age: 59 Year
  Sex: Female
  Weight: 82.5547 kg

DRUGS (4)
  1. METFORMIN HCL [Suspect]
     Indication: TYPE 2 DIABETES MELLITUS
     Dosage: 500 MG TABLET 2X DAILY PO
     Route: 048
     Dates: start: 20061214, end: 20090716
  2. ACTOS [Concomitant]
  3. MULTI-VITAMIN [Concomitant]
  4. CALCIUM W/VIT D [Concomitant]

REACTIONS (2)
  - DIARRHOEA [None]
  - HEADACHE [None]
